FAERS Safety Report 20028130 (Version 1)
Quarter: 2021Q4

REPORT INFORMATION
  Report Type: Spontaneous
  Country: US (occurrence: US)
  Receive Date: 20211103
  Receipt Date: 20211103
  Transmission Date: 20220303
  Serious: No
  Sender: FDA-Public Use
  Company Number: US-AUROBINDO-AUR-APL-2021-017323

PATIENT
  Age: 66 Year
  Sex: Male
  Weight: 72.5 kg

DRUGS (2)
  1. ESZOPICLONE [Suspect]
     Active Substance: ESZOPICLONE
     Indication: Insomnia
     Dosage: 1 DOSAGE FORM, ONCE A DAY AT NIGHT
     Route: 048
     Dates: start: 20210414, end: 20210420
  2. CELEBREX [Concomitant]
     Active Substance: CELECOXIB
     Indication: Arthritis
     Dosage: UNK
     Route: 065

REACTIONS (4)
  - Drug ineffective [Unknown]
  - Extra dose administered [Unknown]
  - Product quality issue [Unknown]
  - Product substitution issue [Unknown]
